FAERS Safety Report 23132091 (Version 1)
Quarter: 2023Q4

REPORT INFORMATION
  Report Type: Report from Study
  Country: US (occurrence: US)
  Receive Date: 20231101
  Receipt Date: 20231101
  Transmission Date: 20240109
  Serious: Yes (Other)
  Sender: FDA-Public Use
  Company Number: US-TAKEDA-US201848030

PATIENT
  Sex: Female

DRUGS (1)
  1. HUMAN IMMUNOGLOBULIN G [Suspect]
     Active Substance: HUMAN IMMUNOGLOBULIN G
     Indication: Immunodeficiency common variable
     Dosage: UNK
     Route: 042

REACTIONS (7)
  - Kidney infection [Unknown]
  - Nephrolithiasis [Unknown]
  - Red blood cell sedimentation rate increased [Unknown]
  - Sinus disorder [Unknown]
  - Illness [Unknown]
  - Intervertebral disc protrusion [Recovering/Resolving]
  - Fatigue [Unknown]
